FAERS Safety Report 4643881-9 (Version None)
Quarter: 2005Q2

REPORT INFORMATION
  Report Type: 
  Country: None (occurrence: None)
  Receive Date: 20050425
  Receipt Date: 20050414
  Transmission Date: 20051028
  Serious: Yes (Other)
  Sender: FDA-Public Use
  Company Number: US-GLAXOSMITHKLINE-A0554161A

PATIENT
  Age: 46 Year
  Sex: Male
  Weight: 97 kg

DRUGS (9)
  1. AQUAFRESH ALL WITH TARTAR CONTROL TOOTHPASTE TUBE [Suspect]
     Indication: DENTAL CLEANING
     Dates: start: 19920101
  2. LIPITOR [Concomitant]
     Indication: BLOOD CHOLESTEROL INCREASED
     Dosage: 10MG PER DAY
     Route: 048
  3. MULTI-VITAMIN [Concomitant]
     Indication: DRUG USE FOR UNKNOWN INDICATION
     Route: 048
  4. B-12 [Concomitant]
     Indication: DRUG USE FOR UNKNOWN INDICATION
     Route: 048
  5. B-6 [Concomitant]
     Indication: DRUG USE FOR UNKNOWN INDICATION
     Route: 048
  6. SUDAFED 12 HOUR [Concomitant]
     Indication: MULTIPLE ALLERGIES
     Route: 048
  7. ZYRTEC [Concomitant]
     Indication: MULTIPLE ALLERGIES
     Route: 048
  8. TYLENOL (CAPLET) [Concomitant]
     Indication: PAIN
     Route: 048
  9. TYLENOL [Concomitant]
     Indication: MULTIPLE ALLERGIES

REACTIONS (1)
  - NON-HODGKIN'S LYMPHOMA [None]
